FAERS Safety Report 8359172-9 (Version None)
Quarter: 2012Q2

REPORT INFORMATION
  Report Type: 
  Country: None (occurrence: None)
  Receive Date: 20120511
  Receipt Date: 20120509
  Transmission Date: 20120825
  Serious: Yes (Hospitalization)
  Sender: FDA-Public Use
  Company Number: ADR-2009-6325

PATIENT
  Sex: Male

DRUGS (1)
  1. LIORESAL [Suspect]
     Indication: MUSCLE SPASTICITY
     Dosage: 100 MCG, DAILY, INTRAH
     Route: 037

REACTIONS (12)
  - PRURITUS [None]
  - DEVICE BREAKAGE [None]
  - UNDERDOSE [None]
  - BODY TEMPERATURE FLUCTUATION [None]
  - MASS [None]
  - REBOUND EFFECT [None]
  - HYPERHIDROSIS [None]
  - SCAR [None]
  - DRUG WITHDRAWAL SYNDROME [None]
  - MUSCLE RIGIDITY [None]
  - MUSCLE SPASTICITY [None]
  - LETHARGY [None]
